FAERS Safety Report 5882270-6 (Version None)
Quarter: 2008Q3

REPORT INFORMATION
  Report Type: 
  Country: None (occurrence: None)
  Receive Date: 20080912
  Receipt Date: 20080730
  Transmission Date: 20090109
  Serious: No
  Sender: FDA-Public Use
  Company Number: US-ABBOTT-08P-163-0467119-00

PATIENT
  Sex: Male
  Weight: 66.284 kg

DRUGS (6)
  1. HUMIRA [Suspect]
     Indication: COLITIS ULCERATIVE
     Dosage: LOADING DOSE
     Route: 058
     Dates: start: 20080606, end: 20080606
  2. HUMIRA [Suspect]
     Dosage: 2ND DOSE
     Route: 058
     Dates: start: 20080620, end: 20080620
  3. HUMIRA [Suspect]
     Route: 058
     Dates: start: 20080703
  4. PREDNISONE TAB [Concomitant]
     Indication: DRUG USE FOR UNKNOWN INDICATION
  5. MESALAMINE [Concomitant]
     Indication: DRUG USE FOR UNKNOWN INDICATION
  6. AZATHIOPRINE SODIUM [Concomitant]
     Indication: DRUG USE FOR UNKNOWN INDICATION

REACTIONS (2)
  - ARTHRALGIA [None]
  - RASH PAPULAR [None]
